FAERS Safety Report 16958299 (Version 1)
Quarter: 2019Q4

REPORT INFORMATION
  Report Type: Spontaneous
  Country: US (occurrence: US)
  Receive Date: 20191024
  Receipt Date: 20191024
  Transmission Date: 20200122
  Serious: Yes (Other)
  Sender: FDA-Public Use
  Company Number: US-ASTRAZENECA-2019SF49041

PATIENT
  Age: 60 Year
  Sex: Male

DRUGS (1)
  1. FASENRA [Suspect]
     Active Substance: BENRALIZUMAB
     Indication: ASTHMA
     Dosage: 30 MG SUBQUE EVERY 4 WEEKS FOR FIRST 3 DOSES THEN EVERY 8 WEEKS WEEKS HAD 2 DOSES SO FAR DOSAGE
     Route: 058

REACTIONS (3)
  - Lymphadenopathy [Unknown]
  - Eosinophilic granulomatosis with polyangiitis [Unknown]
  - Autoimmune disorder [Unknown]
